FAERS Safety Report 16315681 (Version 1)
Quarter: 2019Q2

REPORT INFORMATION
  Report Type: Spontaneous
  Country: CZ (occurrence: CZ)
  Receive Date: 20190515
  Receipt Date: 20190515
  Transmission Date: 20190711
  Serious: Yes (Other)
  Sender: FDA-Public Use
  Company Number: PHHY2019CZ108896

PATIENT
  Age: 61 Year
  Sex: Female
  Weight: 72 kg

DRUGS (1)
  1. BISOPROLOL [Suspect]
     Active Substance: BISOPROLOL
     Indication: PALPITATIONS
     Dosage: 5 MG, QD
     Route: 065

REACTIONS (7)
  - Lung hyperinflation [Recovered/Resolved]
  - Dyspnoea [Unknown]
  - Pulmonary hypertension [Recovered/Resolved]
  - Tricuspid valve incompetence [Recovered/Resolved]
  - Lung disorder [Recovered/Resolved]
  - Oedema peripheral [Unknown]
  - General physical health deterioration [Unknown]
